FAERS Safety Report 9539536 (Version 2)
Quarter: 2013Q3

REPORT INFORMATION
  Report Type: Spontaneous
  Country: US (occurrence: US)
  Receive Date: 20130920
  Receipt Date: 20130920
  Transmission Date: 20140515
  Serious: Yes (Other)
  Sender: FDA-Public Use
  Company Number: US-NAPPMUNDI-USA-2011-0077147

PATIENT
  Age: 61 Year
  Sex: Female
  Weight: 58.96 kg

DRUGS (4)
  1. BUTRANS [Suspect]
     Indication: PAIN
     Dosage: 10 MCG/HR, UNK
     Route: 062
     Dates: start: 20110624, end: 20110701
  2. TOPROL [Concomitant]
     Indication: HYPERTENSION
     Dosage: 100 MG, UNK
     Dates: start: 20100920
  3. CITALOPRAM [Concomitant]
     Indication: DEPRESSION
     Dosage: 40 MG, UNK
     Dates: start: 20100319
  4. COZAAR [Concomitant]
     Indication: HYPERTENSION
     Dosage: 50 MG, UNK
     Dates: start: 20101101

REACTIONS (3)
  - Blister [Recovered/Resolved]
  - Application site irritation [Unknown]
  - Application site rash [Unknown]
